FAERS Safety Report 19188650 (Version 1)
Quarter: 2021Q2

REPORT INFORMATION
  Report Type: Spontaneous
  Country: US (occurrence: US)
  Receive Date: 20210427
  Receipt Date: 20210427
  Transmission Date: 20210717
  Serious: No
  Sender: FDA-Public Use
  Company Number: None

PATIENT
  Age: 11 Year
  Sex: Male
  Weight: 27 kg

DRUGS (7)
  1. MELATONIN [Concomitant]
     Active Substance: MELATONIN
  2. GUANFACINE HCL EXTENDED RELEASE 2MG [Suspect]
     Active Substance: GUANFACINE HYDROCHLORIDE
     Indication: ATTENTION DEFICIT HYPERACTIVITY DISORDER
     Dosage: ?          QUANTITY:1 TABLET(S);?
     Route: 048
     Dates: start: 20210310, end: 20210411
  3. GUANFACINE HCL EXTENDED RELEASE [Concomitant]
  4. PROBIOTIC [Concomitant]
     Active Substance: PROBIOTICS NOS
  5. GUANFACINE HCL EXTENDED RELEASE 2MG [Suspect]
     Active Substance: GUANFACINE HYDROCHLORIDE
     Indication: MIGRAINE
     Dosage: ?          QUANTITY:1 TABLET(S);?
     Route: 048
     Dates: start: 20210310, end: 20210411
  6. QUETIAPINE FUMARATE. [Suspect]
     Active Substance: QUETIAPINE FUMARATE
  7. RISPERDONE [Concomitant]
     Active Substance: RISPERIDONE

REACTIONS (10)
  - Aggression [None]
  - Product quality issue [None]
  - Dizziness [None]
  - Suicidal ideation [None]
  - Epistaxis [None]
  - Hypersomnia [None]
  - Crying [None]
  - Panic attack [None]
  - Abnormal behaviour [None]
  - Anxiety [None]

NARRATIVE: CASE EVENT DATE: 20210406
